FAERS Safety Report 9235623 (Version 3)
Quarter: 2014Q2

REPORT INFORMATION
  Report Type: Report from Study
  Country: CA (occurrence: CA)
  Receive Date: 20130417
  Receipt Date: 20140410
  Transmission Date: 20141212
  Serious: Yes (Hospitalization)
  Sender: FDA-Public Use
  Company Number: CA-JNJFOC-20130406226

PATIENT
  Age: 59 Year
  Sex: Female
  Weight: 90.8 kg

DRUGS (9)
  1. REMICADE [Suspect]
     Indication: RHEUMATOID ARTHRITIS
     Dosage: 10TH INFUSION ON 18-NOV-2014 (A FUTURE DATE)
     Route: 042
  2. REMICADE [Suspect]
     Indication: RHEUMATOID ARTHRITIS
     Dosage: 8TH INFUSION
     Route: 042
     Dates: start: 20130724
  3. REMICADE [Suspect]
     Indication: RHEUMATOID ARTHRITIS
     Dosage: FIFTH INFUSION
     Route: 042
     Dates: start: 20130204
  4. REMICADE [Suspect]
     Indication: RHEUMATOID ARTHRITIS
     Route: 042
     Dates: start: 20120816
  5. CRESTOR [Concomitant]
     Route: 065
  6. CIPRALEX [Concomitant]
     Route: 065
  7. LEFLUNOMIDE [Concomitant]
     Route: 048
  8. MORPHINE [Concomitant]
     Route: 065
  9. VALIUM [Concomitant]
     Route: 065

REACTIONS (5)
  - Ovarian mass [Not Recovered/Not Resolved]
  - Intervertebral disc protrusion [Not Recovered/Not Resolved]
  - Ovarian cyst ruptured [Recovered/Resolved]
  - Intervertebral disc degeneration [Not Recovered/Not Resolved]
  - Tooth abscess [Recovered/Resolved]
